FAERS Safety Report 7751639-7 (Version None)
Quarter: 2011Q3

REPORT INFORMATION
  Report Type: 
  Country: None (occurrence: None)
  Receive Date: 20110914
  Receipt Date: 20110908
  Transmission Date: 20111222
  Serious: Yes (Hospitalization, Other)
  Sender: FDA-Public Use
  Company Number: GB-ABBOTT-11P-167-0852374-00

PATIENT
  Age: 43 Year
  Sex: Male

DRUGS (3)
  1. DEPAKOTE [Suspect]
  2. IBUPROFEN [Suspect]
     Indication: PRODUCT USED FOR UNKNOWN INDICATION
  3. DEPAKOTE [Suspect]
     Indication: EPILEPSY

REACTIONS (6)
  - METABOLIC ACIDOSIS [None]
  - HYPERNATRAEMIA [None]
  - HYPERAMMONAEMIC ENCEPHALOPATHY [None]
  - OVERDOSE [None]
  - THROMBOCYTOPENIA [None]
  - HYPOCALCAEMIA [None]
